FAERS Safety Report 8012451-7 (Version None)
Quarter: 2011Q4

REPORT INFORMATION
  Report Type: 
  Country: None (occurrence: None)
  Receive Date: 20111228
  Receipt Date: 20111214
  Transmission Date: 20120403
  Serious: Yes (Congenital Anomaly)
  Sender: FDA-Public Use
  Company Number: US-AMGEN-USASP2011067879

PATIENT

DRUGS (7)
  1. OMEPRAZOLE [Concomitant]
     Dosage: UNK
     Route: 064
  2. ENBREL [Suspect]
     Indication: PRODUCT USED FOR UNKNOWN INDICATION
     Dosage: UNK
     Route: 064
  3. CHLORPHENIRAMINE MALEATE [Concomitant]
     Dosage: UNK
     Route: 064
  4. IBUPROFEN [Concomitant]
     Dosage: UNK
     Route: 064
  5. CARBASALATE [Concomitant]
     Dosage: UNK
     Route: 064
  6. DEXTROPROPOXYPHENE [Concomitant]
     Dosage: UNK
     Route: 064
  7. PREDNISONE TAB [Concomitant]
     Dosage: UNK
     Route: 064

REACTIONS (4)
  - VENTRICULAR SEPTAL DEFECT [None]
  - VACTERL SYNDROME [None]
  - ATRIAL SEPTAL DEFECT [None]
  - FOETAL EXPOSURE DURING PREGNANCY [None]
